FAERS Safety Report 8493765-3 (Version None)
Quarter: 2012Q3

REPORT INFORMATION
  Report Type: 
  Country: None (occurrence: None)
  Receive Date: 20120706
  Receipt Date: 20120703
  Transmission Date: 20120928
  Serious: Yes (Hospitalization, Other)
  Sender: FDA-Public Use
  Company Number: US-GILEAD-2012-0053358

PATIENT
  Sex: Male

DRUGS (5)
  1. LETAIRIS [Suspect]
     Indication: DIASTOLIC DYSFUNCTION
  2. REVATIO [Concomitant]
  3. LETAIRIS [Suspect]
     Indication: MITRAL VALVE INCOMPETENCE
  4. LETAIRIS [Suspect]
     Indication: HYPOXIA
  5. LETAIRIS [Suspect]
     Indication: PULMONARY HYPERTENSION
     Dosage: 10 MG, UNK
     Route: 048
     Dates: start: 20120117

REACTIONS (4)
  - CARDIAC PACEMAKER INSERTION [None]
  - THERAPEUTIC PROCEDURE [None]
  - RIGHT VENTRICULAR FAILURE [None]
  - ATRIAL FIBRILLATION [None]
